FAERS Safety Report 15247320 (Version 1)
Quarter: 2018Q3

REPORT INFORMATION
  Report Type: Spontaneous
  Country: US (occurrence: US)
  Receive Date: 20180807
  Receipt Date: 20180807
  Transmission Date: 20181010
  Serious: No
  Sender: FDA-Public Use
  Company Number: US-ELI_LILLY_AND_COMPANY-US201808000012

PATIENT
  Age: 76 Year
  Sex: Female

DRUGS (1)
  1. ABEMACICLIB 150MG [Suspect]
     Active Substance: ABEMACICLIB
     Indication: BREAST CANCER FEMALE
     Dosage: 150 MG, UNKNOWN
     Route: 065

REACTIONS (1)
  - Diarrhoea [Unknown]
